FAERS Safety Report 10239940 (Version 1)
Quarter: 2014Q2

REPORT INFORMATION
  Report Type: Spontaneous
  Country: US (occurrence: US)
  Receive Date: 20140616
  Receipt Date: 20140616
  Transmission Date: 20141212
  Serious: No
  Sender: FDA-Public Use
  Company Number: US-GILEAD-2014-0105363

PATIENT
  Age: 50 Year
  Sex: Female

DRUGS (12)
  1. LETAIRIS [Suspect]
     Indication: PULMONARY HYPERTENSION
     Dosage: 10 MG, QD
     Dates: start: 200708
  2. ZYRTEC [Concomitant]
  3. TREPROSTINIL [Concomitant]
  4. DIPYRIDAMOLE [Concomitant]
  5. GABAPENTIN [Concomitant]
  6. ESTRADIOL [Concomitant]
  7. WARFARIN [Concomitant]
  8. SPIRONOLACTONE [Concomitant]
  9. ASPIRIN [Concomitant]
  10. HYDROCODONE/APAP [Concomitant]
  11. NEURONTIN [Concomitant]
  12. MULTIVITAMINS [Concomitant]

REACTIONS (2)
  - Diarrhoea [Unknown]
  - Flushing [Unknown]
